FAERS Safety Report 19241210 (Version 1)
Quarter: 2021Q2

REPORT INFORMATION
  Report Type: Report from Study
  Country: US (occurrence: US)
  Receive Date: 20210510
  Receipt Date: 20210510
  Transmission Date: 20210717
  Serious: Yes (Hospitalization)
  Sender: FDA-Public Use
  Company Number: US-BAYER-2021-137955

PATIENT
  Age: 68 Year
  Sex: Female

DRUGS (1)
  1. STIVARGA [Suspect]
     Active Substance: REGORAFENIB
     Indication: GALLBLADDER CANCER
     Dosage: DAILY DOSE 160 MG ( FOR 21 DAYS AND OFF 7 DAYS)
     Route: 048
     Dates: start: 20210507

REACTIONS (7)
  - Dehydration [Unknown]
  - Eating disorder [None]
  - Illness [None]
  - Hypotension [Unknown]
  - Asthenia [None]
  - Product use in unapproved indication [None]
  - Off label use [None]

NARRATIVE: CASE EVENT DATE: 20210507
